FAERS Safety Report 4280778-0 (Version None)
Quarter: 2004Q1

REPORT INFORMATION
  Report Type: 
  Country: None (occurrence: None)
  Receive Date: 20040127
  Receipt Date: 20040116
  Transmission Date: 20041129
  Serious: Yes (Hospitalization)
  Sender: FDA-Public Use
  Company Number: MK200401-0115-2

PATIENT
  Age: 55 Year
  Sex: Female

DRUGS (3)
  1. ANAFRANIL CAP [Suspect]
     Dates: start: 20040107, end: 20040107
  2. BROMAZEPAM [Suspect]
  3. ENALAPRIL MALEATE [Suspect]

REACTIONS (6)
  - DEPRESSED LEVEL OF CONSCIOUSNESS [None]
  - DRUG TOXICITY [None]
  - LETHARGY [None]
  - NYSTAGMUS [None]
  - PUPILS UNEQUAL [None]
  - SOMNOLENCE [None]
